FAERS Safety Report 6271999-6 (Version None)
Quarter: 2009Q3

REPORT INFORMATION
  Report Type: 
  Country: None (occurrence: None)
  Receive Date: 20090717
  Receipt Date: 20090715
  Transmission Date: 20100115
  Serious: No
  Sender: FDA-Public Use
  Company Number: US-B.I. PHARMACEUTICALS,INC./RIDGEFIELD-2009-BP-07215BP

PATIENT
  Age: 61 Year
  Sex: Female

DRUGS (6)
  1. MICARDIS [Suspect]
     Indication: HYPERTENSION
     Dosage: 80 MG
     Route: 048
     Dates: start: 20050101
  2. JANUVIA [Concomitant]
     Indication: DIABETES MELLITUS
     Dates: start: 20080601
  3. ASPIRIN [Concomitant]
  4. LOVAZA [Concomitant]
  5. LASIX [Concomitant]
  6. K-DUR [Concomitant]

REACTIONS (2)
  - DIZZINESS [None]
  - HEADACHE [None]
